FAERS Safety Report 7031734-0 (Version None)
Quarter: 2010Q4

REPORT INFORMATION
  Report Type: 
  Country: None (occurrence: None)
  Receive Date: 20101007
  Receipt Date: 20100928
  Transmission Date: 20110411
  Serious: Yes (Hospitalization)
  Sender: FDA-Public Use
  Company Number: US-BIOGENIDEC-2010BI034177

PATIENT
  Age: 47 Year
  Sex: Male

DRUGS (4)
  1. AVONEX [Suspect]
     Indication: MULTIPLE SCLEROSIS
     Route: 030
     Dates: start: 20080401
  2. AVONEX [Suspect]
     Route: 030
  3. AVONEX [Suspect]
     Route: 030
     Dates: start: 20040701, end: 20041201
  4. SEIZURE MEDICINE [NOS] [Concomitant]
     Indication: CONVULSION

REACTIONS (2)
  - GRAND MAL CONVULSION [None]
  - PNEUMONIA ASPIRATION [None]
